FAERS Safety Report 9167613 (Version 2)
Quarter: 2013Q3

REPORT INFORMATION
  Report Type: Spontaneous
  Country: GB (occurrence: None)
  Receive Date: 20130304
  Receipt Date: 20130814
  Transmission Date: 20140515
  Serious: Yes (Other)
  Sender: FDA-Public Use
  Company Number: CL-474-2013

PATIENT
  Age: 37 Year
  Sex: Female

DRUGS (1)
  1. LABETALOL [Suspect]
     Indication: GESTATIONAL HYPERTENSION
     Dosage: BD, SEVERAL WEEKS

REACTIONS (4)
  - Raynaud^s phenomenon [None]
  - Maternal exposure during delivery [None]
  - Caesarean section [None]
  - Nipple pain [None]
